FAERS Safety Report 17216272 (Version 2)
Quarter: 2020Q1

REPORT INFORMATION
  Report Type: Spontaneous
  Country: US (occurrence: US)
  Receive Date: 20191230
  Receipt Date: 20200117
  Transmission Date: 20200409
  Serious: No
  Sender: FDA-Public Use
  Company Number: US-ACTELION-A-NJ2019-199655

PATIENT
  Sex: Male

DRUGS (1)
  1. OPSUMIT [Suspect]
     Active Substance: MACITENTAN
     Indication: PULMONARY ARTERIAL HYPERTENSION
     Dosage: 10 MG, QD
     Route: 048
     Dates: start: 20191225

REACTIONS (6)
  - Rash [Unknown]
  - Swelling [Unknown]
  - Nasal congestion [Unknown]
  - Speech disorder [Unknown]
  - Headache [Unknown]
  - Oral mucosal blistering [Unknown]
